FAERS Safety Report 15661261 (Version 1)
Quarter: 2018Q4

REPORT INFORMATION
  Report Type: Spontaneous
  Country: FR (occurrence: FR)
  Receive Date: 20181127
  Receipt Date: 20181127
  Transmission Date: 20190205
  Serious: Yes (Hospitalization)
  Sender: FDA-Public Use
  Company Number: FR-PFIZER INC-2018479969

PATIENT
  Age: 63 Year
  Sex: Male
  Weight: 76 kg

DRUGS (11)
  1. EUPANTOL [Concomitant]
     Active Substance: PANTOPRAZOLE SODIUM
     Dosage: 20 MG, ONCE DAILY (AT 7 PM)
  2. URBANYL [Concomitant]
     Active Substance: CLOBAZAM
     Dosage: 5 MG, ONCE DAILY (IN THE EVENING)
  3. SPECIAFOLDINE [Concomitant]
     Active Substance: FOLIC ACID
     Dosage: 10 MG, ONCE DAILY (IN THE MORNING)
  4. TENSTATEN [Concomitant]
     Active Substance: CICLETANINE HYDROCHLORIDE
     Dosage: 50 MG, ONCE DAILY (IN THE MORNING)
  5. INLYTA [Suspect]
     Active Substance: AXITINIB
     Indication: CLEAR CELL RENAL CELL CARCINOMA
     Dosage: 5 MG, TWICE DAILY (IN THE MORNING AND IN THE EVENING)
     Route: 048
     Dates: start: 20181001, end: 20181019
  6. LIORESAL [Concomitant]
     Active Substance: BACLOFEN
     Dosage: 50 MG, DAILY (20 MG IN THE MORNING, 10 MG AT NOON, AND 20 MG IN THE EVENING)
  7. BISOCE [Concomitant]
     Active Substance: BISOPROLOL
     Dosage: 2.5 MG, TWICE DAILY (IN THE MORNING AND IN THE EVENING)
  8. TARDYFERON [Concomitant]
     Active Substance: FERROUS SULFATE
     Dosage: 80 MG, ONCE DAILY (IN THE MORNING)
     Dates: end: 20181019
  9. AMLOR [Concomitant]
     Active Substance: AMLODIPINE BESYLATE
     Dosage: 10 MG, ONCE DAILY (IN THE EVENING)
  10. URBANYL [Concomitant]
     Active Substance: CLOBAZAM
     Dosage: 10 MG, ONCE DAILY (AT BEDTIME)
  11. SEROPRAM [CITALOPRAM HYDROCHLORIDE] [Concomitant]
     Dosage: 20 MG, ONCE DAILY (IN THE MORNING)

REACTIONS (2)
  - Hypertension [Recovered/Resolved]
  - Encephalitis [Recovered/Resolved]

NARRATIVE: CASE EVENT DATE: 20181019
